FAERS Safety Report 13819740 (Version 2)
Quarter: 2017Q3

REPORT INFORMATION
  Report Type: Report from Study
  Country: None (occurrence: RO)
  Receive Date: 20170801
  Receipt Date: 20170908
  Transmission Date: 20171127
  Serious: Yes (Life-Threatening, Hospitalization, Disabling)
  Sender: FDA-Public Use
  Company Number: RO-ABBVIE-17P-135-2054936-00

PATIENT
  Age: 46 Year
  Weight: 63 kg

DRUGS (13)
  1. VIEKIRAX [Suspect]
     Active Substance: OMBITASVIR\PARITAPREVIR\RITONAVIR
     Indication: CHRONIC HEPATITIS C
     Route: 048
     Dates: start: 20160709, end: 20160930
  2. EXVIERA [Suspect]
     Active Substance: DASABUVIR
     Indication: CHRONIC HEPATITIS C
     Route: 048
     Dates: start: 20160709, end: 20160930
  3. LACTULOSE. [Concomitant]
     Active Substance: LACTULOSE
     Indication: PROPHYLAXIS
     Route: 048
     Dates: start: 20150501
  4. LACTULOSE. [Concomitant]
     Active Substance: LACTULOSE
     Indication: ENCEPHALOPATHY
  5. RIBAVIRIN. [Suspect]
     Active Substance: RIBAVIRIN
     Indication: CHRONIC HEPATITIS C
     Route: 065
     Dates: start: 20160709, end: 20160930
  6. DIUREX [Concomitant]
     Active Substance: AMILORIDE HYDROCHLORIDE\HYDROCHLOROTHIAZIDE
     Indication: ASCITES
  7. RIFAXIMINE [Concomitant]
     Indication: ENCEPHALOPATHY
  8. ARGININE [Concomitant]
     Active Substance: ARGININE
     Indication: LIVER DISORDER
  9. RIFAXIMINE [Concomitant]
     Indication: PROPHYLAXIS
     Route: 048
     Dates: start: 20150501
  10. DIUREX [Concomitant]
     Active Substance: AMILORIDE HYDROCHLORIDE\HYDROCHLOROTHIAZIDE
     Indication: PROPHYLAXIS
     Route: 048
     Dates: start: 20150501
  11. URSODEOXYCHOLIC ACID [Concomitant]
     Active Substance: URSODIOL
     Indication: PRODUCT USED FOR UNKNOWN INDICATION
  12. ARGININE [Concomitant]
     Active Substance: ARGININE
     Indication: PROPHYLAXIS
     Dates: start: 20120101
  13. URSODEOXYCHOLIC ACID [Concomitant]
     Active Substance: URSODIOL
     Indication: ANTIOXIDANT THERAPY
     Route: 048
     Dates: start: 20120101

REACTIONS (1)
  - Cholangiocarcinoma [Not Recovered/Not Resolved]

NARRATIVE: CASE EVENT DATE: 20161222
